FAERS Safety Report 20718971 (Version 3)
Quarter: 2024Q2

REPORT INFORMATION
  Report Type: Spontaneous
  Country: JP (occurrence: JP)
  Receive Date: 20220418
  Receipt Date: 20240520
  Transmission Date: 20240716
  Serious: Yes (Hospitalization, Other)
  Sender: FDA-Public Use
  Company Number: JP-ONO-2022JP009124

PATIENT
  Age: 72 Year
  Sex: Female

DRUGS (1)
  1. OPDIVO [Suspect]
     Active Substance: NIVOLUMAB
     Indication: Gastric cancer
     Dosage: UNK
     Route: 041
     Dates: start: 202105

REACTIONS (2)
  - Aplasia pure red cell [Unknown]
  - Adrenocorticotropic hormone deficiency [Unknown]

NARRATIVE: CASE EVENT DATE: 20210101
